FAERS Safety Report 17128595 (Version 5)
Quarter: 2021Q2

REPORT INFORMATION
  Report Type: Report from Study
  Country: BR (occurrence: BR)
  Receive Date: 20191209
  Receipt Date: 20210512
  Transmission Date: 20210716
  Serious: Yes (Hospitalization, Other)
  Sender: FDA-Public Use
  Company Number: NVSC2019BR062112

PATIENT
  Age: 41 Year
  Sex: Female
  Weight: 98 kg

DRUGS (6)
  1. COSENTYX [Suspect]
     Active Substance: SECUKINUMAB
     Dosage: 300 MG, QMO
     Route: 065
     Dates: start: 202010
  2. METHOTREXATE. [Concomitant]
     Active Substance: METHOTREXATE
     Indication: PSORIASIS
     Dosage: 8 DF, QW
     Route: 048
     Dates: start: 2017
  3. COSENTYX [Suspect]
     Active Substance: SECUKINUMAB
     Indication: PSORIATIC ARTHROPATHY
     Dosage: 2 DF, QMO  (PENS) 300 MG  (STOP AFTER 5 WEEKS)
     Route: 058
     Dates: start: 20181029
  4. COSENTYX [Suspect]
     Active Substance: SECUKINUMAB
     Dosage: 2 DF, QMO  (PENS)
     Route: 058
     Dates: start: 201811
  5. COSENTYX [Suspect]
     Active Substance: SECUKINUMAB
     Dosage: 300 MG, QMO (2 OF 150 MG)
     Route: 065
  6. FOLIC ACID. [Concomitant]
     Active Substance: FOLIC ACID
     Indication: PSORIASIS
     Dosage: 1 DF, QW2
     Route: 048
     Dates: start: 2017

REACTIONS (17)
  - Musculoskeletal discomfort [Unknown]
  - Ear infection [Recovered/Resolved]
  - Arthralgia [Not Recovered/Not Resolved]
  - Inflammation [Unknown]
  - Asthenia [Unknown]
  - Ear infection [Recovered/Resolved]
  - Product availability issue [Unknown]
  - Arthritis [Unknown]
  - Joint range of motion decreased [Not Recovered/Not Resolved]
  - Myositis [Not Recovered/Not Resolved]
  - Feeling abnormal [Unknown]
  - Emotional disorder [Unknown]
  - Psoriasis [Unknown]
  - Scab [Unknown]
  - Skin exfoliation [Not Recovered/Not Resolved]
  - Gait inability [Not Recovered/Not Resolved]
  - Pain in extremity [Not Recovered/Not Resolved]

NARRATIVE: CASE EVENT DATE: 20191026
